FAERS Safety Report 12656637 (Version 1)
Quarter: 2016Q3

REPORT INFORMATION
  Report Type: Spontaneous
  Country: US (occurrence: US)
  Receive Date: 20160816
  Receipt Date: 20160816
  Transmission Date: 20161109
  Serious: No
  Sender: FDA-Public Use
  Company Number: US-PERRIGO-16US000840

PATIENT
  Age: 25 Year
  Sex: Female
  Weight: 56.69 kg

DRUGS (1)
  1. LORATADINE. [Suspect]
     Active Substance: LORATADINE
     Indication: PROPHYLAXIS
     Dosage: 10 MG, SINGLE
     Route: 048
     Dates: start: 20151216, end: 20151216

REACTIONS (3)
  - Myalgia [Recovered/Resolved]
  - Off label use [Recovered/Resolved]
  - Dry skin [Not Recovered/Not Resolved]

NARRATIVE: CASE EVENT DATE: 20151216
